FAERS Safety Report 7895288-9 (Version None)
Quarter: 2011Q4

REPORT INFORMATION
  Report Type: 
  Country: None (occurrence: None)
  Receive Date: 20111106
  Receipt Date: 20110824
  Transmission Date: 20120403
  Serious: No
  Sender: FDA-Public Use
  Company Number: US-AMGEN-USASP2011043543

PATIENT
  Sex: Female

DRUGS (1)
  1. ENBREL [Suspect]
     Indication: PSORIASIS
     Dosage: 50 MG, QWK
     Dates: start: 20090601

REACTIONS (12)
  - INJECTION SITE PAIN [None]
  - MEMORY IMPAIRMENT [None]
  - CYSTITIS [None]
  - ASTHENIA [None]
  - BACK PAIN [None]
  - ARTHROPOD BITE [None]
  - PAIN [None]
  - MALAISE [None]
  - NECK PAIN [None]
  - OEDEMA PERIPHERAL [None]
  - BRONCHITIS [None]
  - ARTHRALGIA [None]
